FAERS Safety Report 5136198-X (Version None)
Quarter: 2006Q4

REPORT INFORMATION
  Report Type: 
  Country: None (occurrence: None)
  Receive Date: 20061027
  Receipt Date: 20060529
  Transmission Date: 20070319
  Serious: Yes (Other)
  Sender: FDA-Public Use
  Company Number: PHBS2006JP08095

PATIENT
  Age: 59 Year
  Sex: Female

DRUGS (4)
  1. AREDIA [Suspect]
     Indication: METASTASES TO BONE
     Dosage: UNK, UNK
     Route: 042
     Dates: start: 20040301
  2. FURTULON [Concomitant]
     Route: 065
  3. ENDOXAN [Concomitant]
     Route: 065
  4. HYSRON [Concomitant]
     Route: 065

REACTIONS (7)
  - DENTAL CLEANING [None]
  - DIARRHOEA [None]
  - OSTEOMYELITIS [None]
  - OSTEONECROSIS [None]
  - TOOTH DISORDER [None]
  - TOOTH EXTRACTION [None]
  - TUMOUR MARKER INCREASED [None]
